FAERS Safety Report 6194908-7 (Version None)
Quarter: 2009Q2

REPORT INFORMATION
  Report Type: 
  Country: None (occurrence: None)
  Receive Date: 20090519
  Receipt Date: 20081124
  Transmission Date: 20091009
  Serious: No
  Sender: FDA-Public Use
  Company Number: US-TYCO HEALTHCARE/MALLINCKRODT-T200802019

PATIENT

DRUGS (2)
  1. METHADONE [Suspect]
     Indication: PAIN
  2. OXYCODONE HCL [Interacting]
     Indication: PAIN

REACTIONS (2)
  - DRUG EFFECT DECREASED [None]
  - DRUG INTERACTION [None]
